FAERS Safety Report 8211066-5 (Version None)
Quarter: 2012Q1

REPORT INFORMATION
  Report Type: 
  Country: None (occurrence: None)
  Receive Date: 20120315
  Receipt Date: 20120312
  Transmission Date: 20120608
  Serious: Yes (Death, Other)
  Sender: FDA-Public Use
  Company Number: PHHY2010CA46792

PATIENT
  Sex: Female

DRUGS (2)
  1. CLOZARIL [Suspect]
     Indication: AFFECTIVE DISORDER
     Dosage: 400 MG, UNK
     Route: 048
     Dates: start: 20050101
  2. CLOZARIL [Suspect]
     Indication: SCHIZOPHRENIA
     Route: 048
     Dates: start: 20020201

REACTIONS (5)
  - OBESITY [None]
  - URINARY TRACT INFECTION BACTERIAL [None]
  - DEATH [None]
  - SLEEP APNOEA SYNDROME [None]
  - CARDIAC FAILURE [None]
